FAERS Safety Report 24754328 (Version 3)
Quarter: 2025Q1

REPORT INFORMATION
  Report Type: Spontaneous
  Country: AU (occurrence: AU)
  Receive Date: 20241219
  Receipt Date: 20250128
  Transmission Date: 20250408
  Serious: Yes (Other)
  Sender: MYLAN
  Company Number: AU-MYLANLABS-2024M1112122

PATIENT
  Age: 8 Year

DRUGS (1)
  1. EPIPEN [Suspect]
     Active Substance: EPINEPHRINE
     Indication: Product used for unknown indication
     Route: 065

REACTIONS (4)
  - Device failure [Unknown]
  - Needle issue [Unknown]
  - Embedded device [Unknown]
  - Product quality issue [Unknown]
